FAERS Safety Report 20317024 (Version 1)
Quarter: 2022Q1

REPORT INFORMATION
  Report Type: Spontaneous
  Country: CN (occurrence: CN)
  Receive Date: 20220110
  Receipt Date: 20220110
  Transmission Date: 20220424
  Serious: Yes (Hospitalization, Other)
  Sender: FDA-Public Use
  Company Number: CN-LUPIN PHARMACEUTICALS INC.-2021-26592

PATIENT
  Age: 55 Year
  Sex: Male
  Weight: 85 kg

DRUGS (15)
  1. METHYLPREDNISOLONE [Suspect]
     Active Substance: METHYLPREDNISOLONE
     Indication: Relapsing-remitting multiple sclerosis
     Dosage: 500 MILLIGRAM, QD
     Route: 042
  2. METHYLPREDNISOLONE [Suspect]
     Active Substance: METHYLPREDNISOLONE
     Dosage: 24 MILLIGRAM, QD
     Route: 048
  3. METHYLPREDNISOLONE [Suspect]
     Active Substance: METHYLPREDNISOLONE
     Dosage: 6 MILLIGRAM, QD
     Route: 048
  4. INSULIN ASPART [Concomitant]
     Active Substance: INSULIN ASPART
     Indication: Steroid diabetes
     Dosage: 60 INTERNATIONAL UNIT, QD GIVEN BEFORE THE THREE MEALS
     Route: 065
  5. INSULIN GLARGINE [Concomitant]
     Active Substance: INSULIN GLARGINE
     Indication: Steroid diabetes
     Dosage: 26 INTERNATIONAL UNIT, QD AT BEDTIME
     Route: 065
  6. INSULIN GLARGINE [Concomitant]
     Active Substance: INSULIN GLARGINE
     Dosage: 20 INTERNATIONAL UNIT, QD
     Route: 065
  7. INSULIN GLARGINE [Concomitant]
     Active Substance: INSULIN GLARGINE
     Dosage: 16 INTERNATIONAL UNIT, QD
     Route: 065
  8. INSULIN GLARGINE [Concomitant]
     Active Substance: INSULIN GLARGINE
     Dosage: 10 INTERNATIONAL UNIT, QD
     Route: 065
  9. INSULIN LISPRO [Concomitant]
     Active Substance: INSULIN LISPRO
     Indication: Steroid diabetes
     Dosage: 60 INTERNATIONAL UNIT, QD
     Route: 065
  10. INSULIN LISPRO [Concomitant]
     Active Substance: INSULIN LISPRO
     Dosage: 54 INTERNATIONAL UNIT, QD
     Route: 065
  11. INSULIN LISPRO [Concomitant]
     Active Substance: INSULIN LISPRO
     Dosage: 46 INTERNATIONAL UNIT, QD
     Route: 065
  12. INSULIN LISPRO [Concomitant]
     Active Substance: INSULIN LISPRO
     Dosage: 30 INTERNATIONAL UNIT, QD
     Route: 065
  13. INSULIN LISPRO [Concomitant]
     Active Substance: INSULIN LISPRO
     Dosage: 18 INTERNATIONAL UNIT, QD
     Route: 065
  14. METHOTREXATE [Concomitant]
     Active Substance: METHOTREXATE
     Indication: Relapsing-remitting multiple sclerosis
     Dosage: 7.5 MILLIGRAM PER WEEK
     Route: 065
  15. HERBALS [Concomitant]
     Active Substance: HERBALS
     Indication: Relapsing-remitting multiple sclerosis
     Dosage: 60 MILLIGRAM, QD
     Route: 065

REACTIONS (2)
  - Steroid diabetes [Recovered/Resolved]
  - Weight increased [Recovering/Resolving]
